FAERS Safety Report 24594133 (Version 1)
Quarter: 2024Q4

REPORT INFORMATION
  Report Type: Report from Study
  Country: CN (occurrence: CN)
  Receive Date: 20241108
  Receipt Date: 20241108
  Transmission Date: 20250114
  Serious: Yes (Hospitalization)
  Sender: RANBAXY
  Company Number: CN-SUN PHARMACEUTICAL INDUSTRIES LTD-2024R1-475440

PATIENT
  Age: 64 Year
  Sex: Male

DRUGS (1)
  1. SONIDEGIB [Suspect]
     Active Substance: SONIDEGIB
     Indication: Basal cell carcinoma
     Dosage: 200 MILLIGRAM, QD
     Route: 048
     Dates: start: 20240727, end: 20240914

REACTIONS (2)
  - Dizziness [Not Recovered/Not Resolved]
  - Coronary artery disease [Not Recovered/Not Resolved]

NARRATIVE: CASE EVENT DATE: 20241007
